FAERS Safety Report 10674172 (Version 1)
Quarter: 2014Q4

REPORT INFORMATION
  Report Type: Spontaneous
  Country: GB (occurrence: GB)
  Receive Date: 20141224
  Receipt Date: 20141224
  Transmission Date: 20150529
  Serious: Yes (Other)
  Sender: FDA-Public Use
  Company Number: GB-PFIZER INC-2014353417

PATIENT
  Age: 67 Year
  Sex: Male

DRUGS (1)
  1. EPANUTIN [Suspect]
     Active Substance: PHENYTOIN SODIUM
     Dosage: 300 MG, DAILY AT NIGHT

REACTIONS (1)
  - Blood creatine phosphokinase increased [Unknown]
